FAERS Safety Report 9227152 (Version 1)
Quarter: 2013Q2

REPORT INFORMATION
  Report Type: Spontaneous
  Country: CA (occurrence: CA)
  Receive Date: 20130412
  Receipt Date: 20130412
  Transmission Date: 20140414
  Serious: Yes (Hospitalization)
  Sender: FDA-Public Use
  Company Number: CA-JNJFOC-20120301789

PATIENT
  Age: 42 Year
  Sex: Female
  Weight: 82 kg

DRUGS (18)
  1. REMICADE [Suspect]
     Indication: CROHN^S DISEASE
     Route: 042
     Dates: start: 20091206
  2. REMICADE [Suspect]
     Indication: CROHN^S DISEASE
     Route: 042
  3. REMICADE [Suspect]
     Indication: CROHN^S DISEASE
     Route: 042
  4. REMICADE [Suspect]
     Indication: CROHN^S DISEASE
     Route: 042
     Dates: start: 20111122
  5. REMICADE [Suspect]
     Indication: CROHN^S DISEASE
     Route: 042
     Dates: start: 20101122
  6. IMURAN [Concomitant]
     Route: 065
  7. LASIX [Concomitant]
     Route: 065
  8. PANTOLOC [Concomitant]
     Route: 065
  9. LISINOPRIL HYDROCHLOROTHIAZIDE [Concomitant]
     Indication: HYPERTENSION
     Dosage: 20/12.5 MG
     Route: 065
  10. ZOPICLONE [Concomitant]
     Route: 065
  11. MORPHINE SULFATE [Concomitant]
     Dosage: PRN
     Route: 065
  12. DOMPERIDONE [Concomitant]
     Route: 065
  13. PANTOPRAZOLE [Concomitant]
     Route: 065
  14. APO-FUROSEMIDE [Concomitant]
     Route: 065
  15. LOMOTIL [Concomitant]
     Indication: DIARRHOEA
     Dosage: 2.5 AND 0.025, 3 EVERY MORNING
     Route: 065
  16. APO-ZOPICLONE [Concomitant]
     Indication: SLEEP DISORDER
     Dosage: AT BED TIME
     Route: 065
  17. ALL OTHER THERAPEUTICS [Concomitant]
     Indication: CONTRACEPTION
     Dosage: 28 DAY CYCLE
     Route: 065
  18. CHOLESTYRAMINE [Concomitant]
     Indication: DIARRHOEA
     Route: 065

REACTIONS (3)
  - Intestinal stenosis [Recovering/Resolving]
  - Enterocolonic fistula [Recovering/Resolving]
  - Crohn^s disease [Recovering/Resolving]
